FAERS Safety Report 23180876 (Version 1)
Quarter: 2023Q4

REPORT INFORMATION
  Report Type: Spontaneous
  Country: US (occurrence: US)
  Receive Date: 20231114
  Receipt Date: 20231114
  Transmission Date: 20240110
  Serious: Yes (Hospitalization)
  Sender: FDA-Public Use
  Company Number: US-MYLANLABS-2023M1120480

PATIENT
  Age: 67 Year
  Sex: Female

DRUGS (3)
  1. REGADENOSON [Suspect]
     Active Substance: REGADENOSON
     Indication: Scan with contrast
     Dosage: UNK, INFUSION
     Route: 065
  2. NITROGLYCERIN [Suspect]
     Active Substance: NITROGLYCERIN
     Indication: Arteriospasm coronary
     Dosage: UNK
     Route: 022
  3. NICARDIPINE [Suspect]
     Active Substance: NICARDIPINE
     Indication: Arteriospasm coronary
     Dosage: UNK
     Route: 065

REACTIONS (2)
  - Arteriospasm coronary [Recovered/Resolved]
  - Drug ineffective [Unknown]
